FAERS Safety Report 9686602 (Version 8)
Quarter: 2014Q3

REPORT INFORMATION
  Report Type: Spontaneous
  Country: US (occurrence: US)
  Receive Date: 20131113
  Receipt Date: 20140902
  Transmission Date: 20150326
  Serious: Yes (Hospitalization)
  Sender: FDA-Public Use
  Company Number: US-GLAXOSMITHKLINE-A1049496A

PATIENT
  Age: 65 Year
  Sex: Female

DRUGS (2)
  1. COUMADIN [Concomitant]
     Active Substance: WARFARIN SODIUM
  2. FLOLAN [Suspect]
     Active Substance: EPOPROSTENOL SODIUM
     Indication: COR PULMONALE CHRONIC
     Dosage: 34NGKM CONTINUOUS
     Route: 042
     Dates: start: 20011210

REACTIONS (9)
  - Fall [Unknown]
  - Dyspnoea [Unknown]
  - Joint dislocation [Unknown]
  - Pulmonary arterial hypertension [Unknown]
  - Medical device complication [Unknown]
  - Pneumonia [Unknown]
  - Investigation [Recovered/Resolved]
  - Bronchitis [Unknown]
  - Epistaxis [Unknown]

NARRATIVE: CASE EVENT DATE: 20140720
